FAERS Safety Report 9482589 (Version 6)
Quarter: 2013Q4

REPORT INFORMATION
  Report Type: Spontaneous
  Country: SE (occurrence: SE)
  Receive Date: 20130828
  Receipt Date: 20131226
  Transmission Date: 20140711
  Serious: Yes (Life-Threatening, Hospitalization, Disabling)
  Sender: FDA-Public Use
  Company Number: SE-B.I. PHARMACEUTICALS,INC./RIDGEFIELD-2013-SW-00414SW

PATIENT
  Age: 65 Year
  Sex: Male
  Weight: 70 kg

DRUGS (7)
  1. PRADAXA [Suspect]
     Indication: ATRIAL FIBRILLATION
     Dates: start: 201306, end: 201306
  2. PRADAXA [Suspect]
     Indication: THROMBOSIS PROPHYLAXIS
     Dosage: 300 MG
     Dates: start: 20130615, end: 20130717
  3. PRADAXA [Suspect]
     Indication: HYPERTENSION
  4. BISOPROLOL ACTAVIS [Concomitant]
     Dates: start: 201307
  5. LOSARTAN ACTAVIS [Concomitant]
     Dosage: FORMULATION: FILM COATED TABLETS
     Dates: start: 201307
  6. ENALAPRIL [Concomitant]
     Dates: start: 201306, end: 201307
  7. XARELTO (RIVAROXABAN) [Concomitant]
     Dates: start: 201307

REACTIONS (7)
  - Dysphagia [Not Recovered/Not Resolved]
  - Asthenia [Not Recovered/Not Resolved]
  - Speech disorder [Not Recovered/Not Resolved]
  - Cerebrovascular accident [Recovered/Resolved with Sequelae]
  - Dysarthria [Recovered/Resolved with Sequelae]
  - Fatigue [Recovered/Resolved with Sequelae]
  - Aphasia [Recovered/Resolved with Sequelae]
